FAERS Safety Report 23526434 (Version 1)
Quarter: 2024Q1

REPORT INFORMATION
  Report Type: Spontaneous
  Country: ES (occurrence: ES)
  Receive Date: 20240215
  Receipt Date: 20240215
  Transmission Date: 20240410
  Serious: Yes (Other)
  Sender: FDA-Public Use
  Company Number: None

PATIENT
  Age: 91 Year
  Sex: Female

DRUGS (5)
  1. TRAMADOL [Suspect]
     Active Substance: TRAMADOL\TRAMADOL HYDROCHLORIDE
     Indication: Pain
     Dosage: TRAMADOL RATIOPHARM 50 MG HARD CAPSULES EFG , 60 CAPSULES
     Route: 048
     Dates: start: 20231010, end: 20231201
  2. DONEPEZIL NORMON [Concomitant]
     Indication: Product used for unknown indication
     Dosage: DONEPEZIL NORMON 10 MG EFG FILM-COATED TABLETS, 28 TABLETS
     Route: 048
     Dates: start: 20160726
  3. COLECALCIFEROL ROVI [Concomitant]
     Indication: Product used for unknown indication
     Dosage: COLECALCIFEROL ROVI 30000 IU FILM-COATED TABLETS, 4 TABLETS
     Route: 048
     Dates: start: 20230728
  4. CYANOCOBALAMIN [Concomitant]
     Active Substance: CYANOCOBALAMIN
     Indication: Product used for unknown indication
     Dosage: OPTOVITE B12 1,000 MICROGRAMS INJECTABLE SOLUTION, 5 AMPOULES OF 2 ML
     Route: 030
     Dates: start: 20221011
  5. TRAZODONE NORMON [Concomitant]
     Indication: Product used for unknown indication
     Dosage: TRAZODONE NORMON 100 MG TABLES EFG , 60 TABLETS (IN ALUMINUM/PVDC BLISTER)
     Route: 048
     Dates: start: 20170905

REACTIONS (2)
  - Altered state of consciousness [Recovered/Resolved]
  - Somnolence [Recovered/Resolved]

NARRATIVE: CASE EVENT DATE: 20231102
